FAERS Safety Report 6388191-7 (Version None)
Quarter: 2009Q4

REPORT INFORMATION
  Report Type: 
  Country: None (occurrence: None)
  Receive Date: 20091005
  Receipt Date: 20090925
  Transmission Date: 20100525
  Serious: Yes (Other)
  Sender: FDA-Public Use
  Company Number: US-BAYER-200927000NA

PATIENT
  Age: 21 Year
  Sex: Female
  Weight: 115 kg

DRUGS (2)
  1. MIRENA [Suspect]
     Indication: CONTRACEPTION
     Dosage: CONTINUOUS DELIVERY
     Route: 015
     Dates: start: 20090407
  2. MIRENA [Suspect]
     Dosage: CONTINUOUS DELIVERY
     Route: 015

REACTIONS (3)
  - ABORTION SPONTANEOUS [None]
  - DEVICE EXPULSION [None]
  - PREGNANCY [None]
